FAERS Safety Report 15867540 (Version 3)
Quarter: 2022Q2

REPORT INFORMATION
  Report Type: Spontaneous
  Country: US (occurrence: US)
  Receive Date: 20190125
  Receipt Date: 20220518
  Transmission Date: 20220721
  Serious: No
  Sender: FDA-Public Use
  Company Number: US-PFIZER INC-2018515196

PATIENT
  Age: 55 Year
  Sex: Male

DRUGS (2)
  1. SOMAVERT [Suspect]
     Active Substance: PEGVISOMANT
     Indication: Acromegaly
     Dosage: 15 MG, DAILY
     Route: 058
  2. SOMAVERT [Suspect]
     Active Substance: PEGVISOMANT
     Indication: Gigantism
     Dosage: 15 MG, DAILY
     Route: 058
     Dates: start: 20181211

REACTIONS (13)
  - Back pain [Unknown]
  - Arthralgia [Unknown]
  - Insulin-like growth factor increased [Unknown]
  - Glycosylated haemoglobin increased [Unknown]
  - Blood prolactin decreased [Unknown]
  - Glomerular filtration rate decreased [Unknown]
  - Blood testosterone decreased [Unknown]
  - Blood follicle stimulating hormone decreased [Unknown]
  - Blood creatinine increased [Unknown]
  - Blood urea increased [Unknown]
  - Blood luteinising hormone decreased [Unknown]
  - Fatigue [Unknown]
  - Product dose omission issue [Unknown]

NARRATIVE: CASE EVENT DATE: 20160817
